FAERS Safety Report 7051145-1 (Version None)
Quarter: 2010Q4

REPORT INFORMATION
  Report Type: 
  Country: None (occurrence: None)
  Receive Date: 20101014
  Receipt Date: 20101006
  Transmission Date: 20110411
  Serious: Yes (Hospitalization)
  Sender: FDA-Public Use
  Company Number: USA/USA/10/0014723

PATIENT
  Age: 46 Year
  Sex: Female
  Weight: 72.5755 kg

DRUGS (24)
  1. SIMVASTATIN [Suspect]
     Indication: BLOOD CHOLESTEROL INCREASED
     Dosage: UNKNOWN, 1 TABLET EVERY EVENING, ORAL
     Route: 048
     Dates: start: 20090601, end: 20100713
  2. PHENYTOIN [Concomitant]
  3. TOPIRAMATE [Concomitant]
  4. KEPPRA [Concomitant]
  5. PHENOBARBITAL TAB [Concomitant]
  6. GABAPENTIN [Concomitant]
  7. ISORDIL [Concomitant]
  8. COREG [Concomitant]
  9. FOLIC ACID [Concomitant]
  10. ASTELIN NOSE SPRAY [Concomitant]
  11. RESTASIS 0.05% EYE SOLUTION (CICLOSPORIN) [Concomitant]
  12. PRILOSEC (OMEPRAZOLE) [Concomitant]
  13. OSCAL 500 MG PLUS D (CALCITE D) [Concomitant]
  14. NORVASC [Concomitant]
  15. DOCUSATE SODIUM (DOCUSATE SODIUM) [Concomitant]
  16. CLONIDINE [Concomitant]
  17. DARVCET N (PROPACET) [Concomitant]
  18. PERCOCET [Concomitant]
  19. PHENERGAN (PROMETHAZINE) [Concomitant]
  20. AMBIEN [Concomitant]
  21. ACETAMINOPHEN [Concomitant]
  22. MAALOX [Concomitant]
  23. MILK OF MAGNESIA TAB [Concomitant]
  24. DULCOLAX 10 MG (BISACODYL) [Concomitant]

REACTIONS (8)
  - BLOOD CREATINE PHOSPHOKINASE INCREASED [None]
  - DYSSTASIA [None]
  - FALL [None]
  - INCORRECT DOSE ADMINISTERED [None]
  - MUSCULAR WEAKNESS [None]
  - MYOPATHY [None]
  - POLYMYOSITIS [None]
  - WEIGHT DECREASED [None]
